FAERS Safety Report 12271644 (Version 2)
Quarter: 2016Q2

REPORT INFORMATION
  Report Type: Spontaneous
  Country: FR (occurrence: FR)
  Receive Date: 20160415
  Receipt Date: 20160421
  Transmission Date: 20160815
  Serious: Yes (Disabling)
  Sender: FDA-Public Use
  Company Number: FR-PFIZER INC-2016204159

PATIENT
  Age: 64 Year
  Sex: Male

DRUGS (1)
  1. TAHOR [Suspect]
     Active Substance: ATORVASTATIN CALCIUM
     Indication: HYPERCHOLESTEROLAEMIA
     Dosage: UNK
     Route: 048
     Dates: start: 20020129, end: 20151203

REACTIONS (2)
  - Muscle tone disorder [Not Recovered/Not Resolved]
  - Tachyarrhythmia [Unknown]

NARRATIVE: CASE EVENT DATE: 2015
